FAERS Safety Report 13775204 (Version 1)
Quarter: 2017Q3

REPORT INFORMATION
  Report Type: Spontaneous
  Country: FR (occurrence: FR)
  Receive Date: 20170721
  Receipt Date: 20170721
  Transmission Date: 20171127
  Serious: Yes (Other)
  Sender: FDA-Public Use
  Company Number: FR-FRESENIUS KABI-FK201706228

PATIENT
  Age: 57 Year
  Sex: Female

DRUGS (6)
  1. GEMCITABINE [Suspect]
     Active Substance: GEMCITABINE\GEMCITABINE HYDROCHLORIDE
     Indication: UTERINE LEIOMYOSARCOMA
     Route: 065
  2. DACARBAZIN [Concomitant]
     Active Substance: DACARBAZINE
     Indication: METASTASES TO LUNG
  3. DACARBAZIN [Concomitant]
     Active Substance: DACARBAZINE
     Indication: METASTASES TO LIVER
  4. GEMCITABINE [Suspect]
     Active Substance: GEMCITABINE\GEMCITABINE HYDROCHLORIDE
     Indication: METASTASES TO LUNG
  5. GEMCITABINE [Suspect]
     Active Substance: GEMCITABINE\GEMCITABINE HYDROCHLORIDE
     Indication: METASTASES TO LIVER
  6. DACARBAZIN [Concomitant]
     Active Substance: DACARBAZINE
     Indication: UTERINE LEIOMYOSARCOMA
     Route: 065

REACTIONS (1)
  - Thrombotic microangiopathy [Recovering/Resolving]
